FAERS Safety Report 19996726 (Version 1)
Quarter: 2021Q4

REPORT INFORMATION
  Report Type: Spontaneous
  Country: US (occurrence: US)
  Receive Date: 20211026
  Receipt Date: 20211026
  Transmission Date: 20220303
  Serious: No
  Sender: FDA-Public Use
  Company Number: US-BAYER-2021A234717

PATIENT
  Sex: Female

DRUGS (2)
  1. CIPRO [Interacting]
     Active Substance: CIPROFLOXACIN HYDROCHLORIDE
     Indication: Product used for unknown indication
     Route: 048
  2. VENCLEXTA [Interacting]
     Active Substance: VENETOCLAX

REACTIONS (1)
  - Drug interaction [Unknown]
